FAERS Safety Report 8156073-6 (Version None)
Quarter: 2012Q1

REPORT INFORMATION
  Report Type: 
  Country: None (occurrence: None)
  Receive Date: 20120222
  Receipt Date: 20120215
  Transmission Date: 20120608
  Serious: Yes (Hospitalization)
  Sender: FDA-Public Use
  Company Number: US-BAYER-200941142NA

PATIENT
  Age: 26 Year
  Sex: Female
  Weight: 114 kg

DRUGS (6)
  1. YASMIN [Suspect]
     Indication: CONTRACEPTION
     Route: 048
     Dates: start: 20050401, end: 20061125
  2. ASPIRIN [Concomitant]
     Dosage: 325 MG (DAILY DOSE), QD, UNKNOWN
     Route: 065
     Dates: start: 20061101
  3. LIPITOR [Concomitant]
     Dosage: 40 MG (DAILY DOSE), QD, UNKNOWN
     Route: 065
     Dates: start: 20061101
  4. METOPROLOL [Concomitant]
     Dosage: 50 MG (DAILY DOSE), BID, UNKNOWN
     Route: 065
     Dates: start: 20061101
  5. PLAVIX [Concomitant]
     Route: 065
  6. ENALAPRIL MALEATE [Concomitant]
     Dosage: UNK
     Dates: start: 20061101

REACTIONS (3)
  - DYSPNOEA [None]
  - ACUTE MYOCARDIAL INFARCTION [None]
  - PAIN [None]
